FAERS Safety Report 16601604 (Version 2)
Quarter: 2019Q4

REPORT INFORMATION
  Report Type: Not Available
  Country: US (occurrence: US)
  Receive Date: 20190719
  Receipt Date: 20191011
  Transmission Date: 20200122
  Serious: Yes (Other)
  Sender: FDA-Public Use
  Company Number: US-NEUROCRINE BIOSCIENCES INC.-2019NBI01955

PATIENT
  Age: 60 Year
  Sex: Female

DRUGS (5)
  1. INGREZZA [Suspect]
     Active Substance: VALBENAZINE
     Indication: TARDIVE DYSKINESIA
     Route: 048
     Dates: start: 20171207
  2. SERTRALINE [Concomitant]
     Active Substance: SERTRALINE HYDROCHLORIDE
     Indication: BIPOLAR DISORDER
     Dosage: DOSAGE 50 (NO UNITS PROVIDED)
     Route: 048
     Dates: start: 20170406
  3. ABILIFY [Concomitant]
     Active Substance: ARIPIPRAZOLE
     Indication: BIPOLAR DISORDER
     Dosage: DOSAGE 5 (NO UNITS PROVIDED)
     Route: 048
     Dates: start: 20170921
  4. WELLBUTRIN SR [Concomitant]
     Active Substance: BUPROPION HYDROCHLORIDE
     Indication: BIPOLAR DISORDER
     Dosage: DOSAGE 150 (NO UNITS PROVIDED)
     Route: 048
     Dates: start: 20170209
  5. VALIUM [Concomitant]
     Active Substance: DIAZEPAM
     Indication: BIPOLAR DISORDER
     Dosage: DOSAGE 5 (NO UNITS PROVIDED)
     Route: 048
     Dates: start: 20170209

REACTIONS (3)
  - Lower limb fracture [Recovered/Resolved]
  - Ankle fracture [Unknown]
  - Fall [Unknown]

NARRATIVE: CASE EVENT DATE: 201905
